FAERS Safety Report 23624051 (Version 5)
Quarter: 2024Q3

REPORT INFORMATION
  Report Type: Spontaneous
  Country: US (occurrence: US)
  Receive Date: 20240312
  Receipt Date: 20240829
  Transmission Date: 20241016
  Serious: No
  Sender: BRISTOL MYERS SQUIBB
  Company Number: US-BRISTOL-MYERS SQUIBB COMPANY-2024-039464

PATIENT
  Age: 64 Year
  Sex: Female

DRUGS (1)
  1. REVLIMID [Suspect]
     Active Substance: LENALIDOMIDE
     Indication: Plasma cell myeloma
     Route: 048

REACTIONS (8)
  - Dehydration [Unknown]
  - Therapy interrupted [Unknown]
  - Product distribution issue [Unknown]
  - Joint swelling [Unknown]
  - Product dose omission issue [Unknown]
  - Nausea [Unknown]
  - Lethargy [Unknown]
  - Malaise [Unknown]
